FAERS Safety Report 23341095 (Version 2)
Quarter: 2025Q4

REPORT INFORMATION
  Report Type: Spontaneous
  Country: US (occurrence: US)
  Receive Date: 20231227
  Receipt Date: 20251214
  Transmission Date: 20260118
  Serious: No
  Sender: RECORDATI
  Company Number: US-RECORDATI RARE DISEASE INC.-2023008965

PATIENT

DRUGS (6)
  1. SIGNIFOR LAR [Suspect]
     Active Substance: PASIREOTIDE PAMOATE
     Indication: Acromegaly
     Dosage: 40 MG
     Dates: start: 20231113
  2. SIGNIFOR LAR [Suspect]
     Active Substance: PASIREOTIDE PAMOATE
     Indication: Gigantism
     Dosage: 60 MG (1 EACH) EVERY 28 DAYS (60 MG IM INJ KIT)
     Route: 030
  3. CABERGOLINE [Concomitant]
     Active Substance: CABERGOLINE
     Indication: Product used for unknown indication
     Dosage: 0.5 MG, BIW (TABLET 0.5 MG)
     Route: 048
     Dates: start: 20221106
  4. LEVOTHYROXINE SODIUM [Concomitant]
     Active Substance: LEVOTHYROXINE SODIUM
     Indication: Product used for unknown indication
     Dosage: 50 MICROGRAM, QD (TABLET 50)
     Route: 048
     Dates: start: 20211106
  5. VIENVA TM [Concomitant]
     Active Substance: ETHINYL ESTRADIOL\LEVONORGESTREL
     Indication: Product used for unknown indication
     Dosage: 0.1-20, QD ( TABLET 0.1-20 MG-MCG)
     Route: 048
     Dates: start: 20221106
  6. VITAMIN D3 [Concomitant]
     Active Substance: CHOLECALCIFEROL
     Indication: Product used for unknown indication
     Dosage: 50 MICROGRAM, QD (TABLET 50 MCG/2000)
     Route: 048
     Dates: start: 20221106

REACTIONS (2)
  - Adenoidectomy [Recovered/Resolved]
  - Turbinoplasty [Recovered/Resolved]

NARRATIVE: CASE EVENT DATE: 20231206
